FAERS Safety Report 10478425 (Version 1)
Quarter: 2014Q3

REPORT INFORMATION
  Report Type: Spontaneous
  Country: US (occurrence: US)
  Receive Date: 20140926
  Receipt Date: 20140926
  Transmission Date: 20150326
  Serious: No
  Sender: FDA-Public Use
  Company Number: US-TARO-2014P1002690

PATIENT
  Age: 50 Year
  Sex: Male
  Weight: 90.72 kg

DRUGS (2)
  1. LISINOPRIL. [Concomitant]
     Active Substance: LISINOPRIL
  2. DESONIDE OINTMENT USP 0.05% [Suspect]
     Active Substance: DESONIDE
     Dosage: BID
     Route: 061
     Dates: start: 201111

REACTIONS (2)
  - Drug ineffective [Recovered/Resolved]
  - Product quality issue [Recovered/Resolved]

NARRATIVE: CASE EVENT DATE: 201403
